FAERS Safety Report 15791115 (Version 1)
Quarter: 2019Q1

REPORT INFORMATION
  Report Type: Spontaneous
  Country: US (occurrence: US)
  Receive Date: 20190104
  Receipt Date: 20190104
  Transmission Date: 20190417
  Serious: Yes (Disabling)
  Sender: FDA-Public Use
  Company Number: None

PATIENT
  Age: 54 Year
  Sex: Female
  Weight: 94.05 kg

DRUGS (3)
  1. LOSARTAN 50 [Concomitant]
     Active Substance: LOSARTAN
  2. DILTIZEM 120 ER [Concomitant]
  3. FLECAINIDE [Suspect]
     Active Substance: FLECAINIDE
     Indication: SINUS ARRHYTHMIA
     Dosage: ?          QUANTITY:6 TABLET(S);OTHER FREQUENCY:ONE TIME DOSE 300;?
     Route: 048

REACTIONS (8)
  - Abdominal pain upper [None]
  - Gastrooesophageal reflux disease [None]
  - Blood pressure increased [None]
  - Respiration abnormal [None]
  - Haemorrhoids [None]
  - Dehydration [None]
  - Constipation [None]
  - Pharyngeal ulceration [None]

NARRATIVE: CASE EVENT DATE: 20180831
